FAERS Safety Report 8679579 (Version 3)
Quarter: 2013Q2

REPORT INFORMATION
  Report Type: Spontaneous
  Country: US (occurrence: US)
  Receive Date: 20120724
  Receipt Date: 20130418
  Transmission Date: 20140414
  Serious: Yes (Disabling, Other)
  Sender: FDA-Public Use
  Company Number: US-009507513-1110USA04297

PATIENT
  Sex: Female
  Weight: 44.45 kg

DRUGS (4)
  1. FOSAMAX [Suspect]
     Indication: OSTEOPOROSIS
     Dosage: 70 MG, QW
     Route: 048
     Dates: start: 200308, end: 200609
  2. FOSAMAX [Suspect]
     Indication: ANKLE FRACTURE
  3. FOSAMAX PLUS D [Suspect]
     Indication: OSTEOPOROSIS
     Dosage: 70 MG, QW
     Route: 048
     Dates: start: 20060921, end: 201005
  4. FOSAMAX PLUS D [Suspect]
     Indication: ANKLE FRACTURE

REACTIONS (31)
  - Hypoacusis [Unknown]
  - Osteonecrosis of jaw [Not Recovered/Not Resolved]
  - Bone disorder [Unknown]
  - Dental caries [Unknown]
  - Oral infection [Unknown]
  - Periodontal disease [Unknown]
  - Stomatitis [Unknown]
  - Hypertension [Unknown]
  - Osteoarthritis [Unknown]
  - Osteolysis [Unknown]
  - Tooth disorder [Unknown]
  - Tooth disorder [Unknown]
  - Jaw fracture [Unknown]
  - Gingival disorder [Unknown]
  - Tooth disorder [Unknown]
  - Tooth disorder [Unknown]
  - Hyperlipidaemia [Unknown]
  - Impaired healing [Unknown]
  - Abscess oral [Unknown]
  - Oral surgery [Unknown]
  - Spinal osteoarthritis [Unknown]
  - Scoliosis [Unknown]
  - Decreased appetite [Unknown]
  - Productive cough [Unknown]
  - Weight decreased [Unknown]
  - Hypothyroidism [Unknown]
  - Stomatitis [Unknown]
  - Asthenia [Unknown]
  - Back pain [Unknown]
  - Vertigo [Unknown]
  - Osteomyelitis [Not Recovered/Not Resolved]
